FAERS Safety Report 13850569 (Version 1)
Quarter: 2017Q3

REPORT INFORMATION
  Report Type: Spontaneous
  Country: US (occurrence: US)
  Receive Date: 20170810
  Receipt Date: 20170810
  Transmission Date: 20171127
  Serious: No
  Sender: FDA-Public Use
  Company Number: US-ASTRAZENECA-2017SE80910

PATIENT
  Sex: Female
  Weight: 68 kg

DRUGS (3)
  1. TAMOXIFEN [Suspect]
     Active Substance: TAMOXIFEN
     Indication: BREAST CANCER
     Dosage: DAILY
     Route: 048
     Dates: end: 2015
  2. ANASTROZOLE. [Suspect]
     Active Substance: ANASTROZOLE
     Indication: MENOPAUSE
     Route: 048
     Dates: start: 2015
  3. PROLIA [Concomitant]
     Active Substance: DENOSUMAB
     Dosage: EVERY SIX MONTHS

REACTIONS (8)
  - Pain in extremity [Unknown]
  - Drug ineffective [Unknown]
  - Hot flush [Unknown]
  - Osteoporosis [Unknown]
  - Arthritis [Unknown]
  - Swelling [Unknown]
  - Rotator cuff syndrome [Unknown]
  - Pain [Unknown]
